FAERS Safety Report 9966600 (Version 1)
Quarter: 2014Q1

REPORT INFORMATION
  Report Type: Report from Study
  Country: US (occurrence: US)
  Receive Date: 20140305
  Receipt Date: 20140305
  Transmission Date: 20141002
  Serious: No
  Sender: FDA-Public Use
  Company Number: US-ABBVIE-13P-163-1122778-00

PATIENT
  Age: 54 Year
  Sex: Female
  Weight: 124.85 kg

DRUGS (9)
  1. HUMIRA [Suspect]
     Indication: RHEUMATOID ARTHRITIS
     Dates: start: 2008, end: 20130701
  2. PREDNISONE [Concomitant]
     Indication: RHEUMATOID ARTHRITIS
  3. ARAVA [Concomitant]
     Indication: RHEUMATOID ARTHRITIS
  4. LEVOTHYROXINE [Concomitant]
     Indication: THYROIDECTOMY
     Dates: start: 1980
  5. ESTRACE [Concomitant]
     Indication: HORMONE REPLACEMENT THERAPY
  6. LOVASTATIN [Concomitant]
     Indication: BLOOD CHOLESTEROL INCREASED
  7. ESCITALOPRAM [Concomitant]
     Indication: DEPRESSION
  8. LISINOPRIL [Concomitant]
     Indication: HYPERTENSION
  9. TRAMADOL [Concomitant]
     Indication: PAIN
     Dosage: PRN

REACTIONS (1)
  - Pain [Not Recovered/Not Resolved]
